FAERS Safety Report 6143346-1 (Version None)
Quarter: 2009Q2

REPORT INFORMATION
  Report Type: 
  Country: None (occurrence: None)
  Receive Date: 20090403
  Receipt Date: 20090327
  Transmission Date: 20091009
  Serious: Yes (Other)
  Sender: FDA-Public Use
  Company Number: B0568113A

PATIENT
  Age: 65 Year
  Sex: Male
  Weight: 70 kg

DRUGS (5)
  1. VALTREX [Suspect]
     Indication: HERPES ZOSTER
     Route: 048
     Dates: start: 20090309, end: 20090310
  2. TERTENSIF RETARD [Concomitant]
     Indication: HYPERTENSION
     Route: 048
  3. ENALAPRIL [Concomitant]
     Indication: HYPERTENSION
     Route: 048
  4. COMPETACT [Concomitant]
     Indication: DIABETES MELLITUS
     Route: 048
  5. SIMVASTATINA [Concomitant]
     Route: 048

REACTIONS (4)
  - BACK PAIN [None]
  - OLIGURIA [None]
  - RENAL PAIN [None]
  - URINE OUTPUT DECREASED [None]
